FAERS Safety Report 21501066 (Version 2)
Quarter: 2022Q4

REPORT INFORMATION
  Report Type: Spontaneous
  Country: US (occurrence: US)
  Receive Date: 20221025
  Receipt Date: 20221125
  Transmission Date: 20230113
  Serious: No
  Sender: FDA-Public Use
  Company Number: US-AIMMUNE THERAPEUTICS, INC.-2022AIMT02641

PATIENT

DRUGS (1)
  1. PALFORZIA [Suspect]
     Active Substance: PEANUT
     Indication: Food allergy
     Dosage: IDE (0.5-6MG), ONCE
     Route: 048

REACTIONS (1)
  - No adverse event [Unknown]
